FAERS Safety Report 7171600-3 (Version None)
Quarter: 2010Q4

REPORT INFORMATION
  Report Type: 
  Country: None (occurrence: None)
  Receive Date: 20101217
  Receipt Date: 20100127
  Transmission Date: 20110411
  Serious: Yes (Other)
  Sender: FDA-Public Use
  Company Number: US-AMGEN-QUU388751

PATIENT

DRUGS (2)
  1. ENBREL [Suspect]
     Indication: PSORIASIS
     Dosage: 50 MG, QWK
     Dates: start: 20020101
  2. UNSPECIFIED TOPICAL PRODUCT [Concomitant]

REACTIONS (3)
  - INFECTION [None]
  - LUPUS-LIKE SYNDROME [None]
  - RASH [None]
